FAERS Safety Report 6283321-X (Version None)
Quarter: 2009Q3

REPORT INFORMATION
  Report Type: 
  Country: None (occurrence: None)
  Receive Date: 20090724
  Receipt Date: 20090713
  Transmission Date: 20100115
  Serious: Yes (Other)
  Sender: FDA-Public Use
  Company Number: LB-ROCHE-645400

PATIENT
  Age: 7 Month
  Sex: Female

DRUGS (9)
  1. ISOTRETINOIN [Suspect]
     Indication: NEUROBLASTOMA
     Route: 065
  2. CYCLOPHOSPHAMIDE [Suspect]
     Indication: NEUROBLASTOMA
     Route: 065
  3. DOXORUBICIN HCL [Suspect]
     Indication: NEUROBLASTOMA
     Route: 065
  4. VINCRISTINE [Suspect]
     Indication: NEUROBLASTOMA
     Route: 065
  5. CISPLATIN [Suspect]
     Indication: NEUROBLASTOMA
     Route: 065
  6. VP-16 [Suspect]
     Indication: NEUROBLASTOMA
     Route: 065
  7. MELPHALAN [Suspect]
     Indication: NEUROBLASTOMA
     Route: 065
  8. NEUPOGEN [Suspect]
     Indication: NEUROBLASTOMA
     Route: 065
  9. TOPOTECAN [Suspect]
     Indication: NEUROBLASTOMA
     Route: 065

REACTIONS (1)
  - VENOOCCLUSIVE LIVER DISEASE [None]
